FAERS Safety Report 7073939-9 (Version None)
Quarter: 2010Q4

REPORT INFORMATION
  Report Type: 
  Country: None (occurrence: None)
  Receive Date: 20101029
  Receipt Date: 20100921
  Transmission Date: 20110411
  Serious: Yes (Other)
  Sender: FDA-Public Use
  Company Number: PHHY2010US68917

PATIENT
  Sex: Female

DRUGS (1)
  1. RECLAST [Suspect]
     Dosage: UNK

REACTIONS (4)
  - CARDIAC FAILURE CONGESTIVE [None]
  - MALAISE [None]
  - PNEUMONIA [None]
  - URINARY TRACT INFECTION [None]
